FAERS Safety Report 15819668 (Version 1)
Quarter: 2019Q1

REPORT INFORMATION
  Report Type: Spontaneous
  Country: IT (occurrence: IT)
  Receive Date: 20190114
  Receipt Date: 20190114
  Transmission Date: 20190417
  Serious: Yes (Hospitalization)
  Sender: FDA-Public Use
  Company Number: IT-ASTRAZENECA-2019SE04878

PATIENT
  Age: 67 Year
  Sex: Male

DRUGS (4)
  1. CONGESCOR [Concomitant]
     Active Substance: BISOPROLOL
  2. PANTORC [Concomitant]
     Active Substance: PANTOPRAZOLE SODIUM
  3. BRILIQUE [Suspect]
     Active Substance: TICAGRELOR
     Indication: CAROTID ARTERY STENOSIS
     Route: 048
     Dates: start: 20161201, end: 20181225
  4. CARDIOASPIRIN [Suspect]
     Active Substance: ASPIRIN
     Indication: CAROTID ARTERY STENOSIS
     Route: 048
     Dates: start: 20161201, end: 20181225

REACTIONS (2)
  - Anaemia [Unknown]
  - Rectal haemorrhage [Unknown]

NARRATIVE: CASE EVENT DATE: 20181225
